FAERS Safety Report 19798495 (Version 1)
Quarter: 2021Q3

REPORT INFORMATION
  Report Type: Report from Study
  Country: US (occurrence: US)
  Receive Date: 20210907
  Receipt Date: 20210907
  Transmission Date: 20211014
  Serious: Yes (Other)
  Sender: FDA-Public Use
  Company Number: US-ASTRAZENECA-2021A679210

PATIENT
  Age: 74 Year
  Sex: Female
  Weight: 74.8 kg

DRUGS (7)
  1. TRIAMTERENE HCTZ [Concomitant]
     Active Substance: HYDROCHLOROTHIAZIDE\TRIAMTERENE
  2. TAGRISSO [Suspect]
     Active Substance: OSIMERTINIB
     Indication: LUNG CARCINOMA CELL TYPE UNSPECIFIED STAGE 0
     Route: 048
     Dates: start: 20210123
  3. ELIQUIS [Suspect]
     Active Substance: APIXABAN
     Route: 065
  4. MODERNA COVID?19 VACCINE [Suspect]
     Active Substance: CX-024414
     Dosage: SECOND DOSE
     Route: 065
     Dates: start: 20210219
  5. LEVOTHYROXINE. [Concomitant]
     Active Substance: LEVOTHYROXINE
  6. LEVOCETIRIZINE [Concomitant]
     Active Substance: LEVOCETIRIZINE
  7. MODERNA COVID?19 VACCINE [Suspect]
     Active Substance: CX-024414
     Dosage: FIRST DOSE
     Route: 065
     Dates: start: 20210122

REACTIONS (9)
  - Tremor [Unknown]
  - Oral blood blister [Recovered/Resolved]
  - Platelet count abnormal [Unknown]
  - Headache [Unknown]
  - Injection site pruritus [Unknown]
  - Rectal haemorrhage [Recovered/Resolved]
  - Asthenia [Unknown]
  - Diarrhoea [Not Recovered/Not Resolved]
  - Epistaxis [Recovered/Resolved]

NARRATIVE: CASE EVENT DATE: 20210315
